FAERS Safety Report 17402689 (Version 2)
Quarter: 2020Q1

REPORT INFORMATION
  Report Type: Spontaneous
  Country: DE (occurrence: DE)
  Receive Date: 20200211
  Receipt Date: 20200211
  Transmission Date: 20200409
  Serious: Yes (Death)
  Sender: FDA-Public Use
  Company Number: DE-BAYER-2020-024471

PATIENT

DRUGS (1)
  1. VITRAKVI [Suspect]
     Active Substance: LAROTRECTINIB
     Indication: NON-SMALL CELL LUNG CANCER
     Dosage: PATIENT RECEIVED 3 BOTTLES OF VITRAKVI
     Dates: start: 20191212

REACTIONS (2)
  - Laboratory test abnormal [None]
  - Death [Fatal]
